FAERS Safety Report 21190757 (Version 3)
Quarter: 2022Q4

REPORT INFORMATION
  Report Type: Report from Study
  Country: US (occurrence: US)
  Receive Date: 20220809
  Receipt Date: 20221026
  Transmission Date: 20230112
  Serious: Yes (Hospitalization, Other)
  Sender: FDA-Public Use
  Company Number: US-NOVARTISPH-NVSC2022US179888

PATIENT
  Sex: Female

DRUGS (1)
  1. KISQALI [Suspect]
     Active Substance: RIBOCICLIB
     Indication: Product used for unknown indication
     Dosage: UNK
     Route: 065
     Dates: start: 2022

REACTIONS (6)
  - Accident [Unknown]
  - Neoplasm malignant [Unknown]
  - Hair growth abnormal [Unknown]
  - Fatigue [Unknown]
  - White blood cell count decreased [Unknown]
  - Product dose omission issue [Unknown]
